FAERS Safety Report 20696300 (Version 1)
Quarter: 2022Q2

REPORT INFORMATION
  Report Type: Spontaneous
  Country: US (occurrence: US)
  Receive Date: 20220411
  Receipt Date: 20220411
  Transmission Date: 20220721
  Serious: No
  Sender: FDA-Public Use
  Company Number: US-PFIZER INC-202200029170

PATIENT
  Age: 77 Year
  Sex: Female

DRUGS (1)
  1. IBRANCE [Suspect]
     Active Substance: PALBOCICLIB
     Dosage: EVERY DAY FOR 21 DAYS, THEN 7 DAYS OFF, AND REPEAT THE CYCLE
     Route: 048

REACTIONS (3)
  - Full blood count abnormal [Unknown]
  - Product prescribing error [Unknown]
  - Product dispensing error [Unknown]
